FAERS Safety Report 4874491-6 (Version None)
Quarter: 2005Q4

REPORT INFORMATION
  Report Type: 
  Country: None (occurrence: None)
  Receive Date: 20051201
  Receipt Date: 20050824
  Transmission Date: 20060501
  Serious: No
  Sender: FDA-Public Use
  Company Number: 2005PV001518

PATIENT
  Age: 51 Year
  Sex: Male
  Weight: 181.4388 kg

DRUGS (6)
  1. BYETTA [Suspect]
     Indication: DIABETES MELLITUS NON-INSULIN-DEPENDENT
     Dosage: 5 MCG;BID;SC
     Route: 058
     Dates: start: 20050729
  2. LANTUS [Concomitant]
  3. HYZAAR [Concomitant]
  4. NORSAC [Concomitant]
  5. GLUCOTROL XL [Concomitant]
  6. AMARYL [Concomitant]

REACTIONS (3)
  - ASTHENIA [None]
  - MUSCLE SPASMS [None]
  - NAUSEA [None]
